FAERS Safety Report 5735491-7 (Version None)
Quarter: 2008Q2

REPORT INFORMATION
  Report Type: 
  Country: None (occurrence: None)
  Receive Date: 20080508
  Receipt Date: 20080430
  Transmission Date: 20081010
  Serious: Yes (Hospitalization)
  Sender: FDA-Public Use
  Company Number: 2008SP008144

PATIENT
  Age: 69 Year
  Sex: Female
  Weight: 74.8 kg

DRUGS (1)
  1. PEG-INTRON [Suspect]
     Indication: HEREDITARY HAEMORRHAGIC TELANGIECTASIA
     Dosage: 80 MCG;QW;IM
     Route: 030
     Dates: end: 20080424

REACTIONS (2)
  - BRONCHITIS [None]
  - SINUSITIS [None]
